FAERS Safety Report 21400711 (Version 1)
Quarter: 2022Q4

REPORT INFORMATION
  Report Type: Report from Study
  Country: US (occurrence: US)
  Receive Date: 20221003
  Receipt Date: 20221003
  Transmission Date: 20230112
  Serious: No
  Sender: FDA-Public Use
  Company Number: US-ABBVIE-22K-163-4537164-00

PATIENT
  Sex: Female

DRUGS (3)
  1. HUMIRA [Suspect]
     Active Substance: ADALIMUMAB
     Indication: Ankylosing spondylitis
     Route: 058
     Dates: start: 2022, end: 202208
  2. ETODOLAC [Concomitant]
     Active Substance: ETODOLAC
     Indication: Inflammatory pain
  3. Covid-19 vaccine [Concomitant]
     Indication: COVID-19 immunisation
     Dosage: ONE IN ONCE.
     Route: 030
     Dates: start: 202104, end: 202104

REACTIONS (2)
  - Injection site reaction [Recovered/Resolved]
  - Drug hypersensitivity [Unknown]

NARRATIVE: CASE EVENT DATE: 20220101
